FAERS Safety Report 16208327 (Version 1)
Quarter: 2019Q2

REPORT INFORMATION
  Report Type: Spontaneous
  Country: US (occurrence: US)
  Receive Date: 20190417
  Receipt Date: 20190417
  Transmission Date: 20190711
  Serious: No
  Sender: FDA-Public Use
  Company Number: US-NOVOPROD-647422

PATIENT
  Sex: Male

DRUGS (3)
  1. FIASP [Suspect]
     Active Substance: INSULIN ASPART
     Indication: PRODUCT USED FOR UNKNOWN INDICATION
     Dosage: 3 UNITS BEFORE MEALS,
     Route: 058
  2. FIASP [Suspect]
     Active Substance: INSULIN ASPART
     Dosage: 16 UNITS
     Route: 058
  3. TRESIBA [Concomitant]
     Active Substance: INSULIN DEGLUDEC
     Indication: PRODUCT USED FOR UNKNOWN INDICATION
     Dosage: 16 UNITS UNITS IN THE EVENING
     Route: 058

REACTIONS (1)
  - Incorrect dose administered [Unknown]
